FAERS Safety Report 21316745 (Version 1)
Quarter: 2022Q3

REPORT INFORMATION
  Report Type: Spontaneous
  Country: US (occurrence: US)
  Receive Date: 20220911
  Receipt Date: 20220911
  Transmission Date: 20221026
  Serious: No
  Sender: FDA-Public Use
  Company Number: US-SA-SAC20220822001757

PATIENT
  Sex: Female

DRUGS (1)
  1. DUPIXENT [Suspect]
     Active Substance: DUPILUMAB
     Dosage: FREQ: OTHER
     Route: 058

REACTIONS (4)
  - Pustule [Unknown]
  - Abdominal discomfort [Unknown]
  - Condition aggravated [Unknown]
  - Sinus disorder [Unknown]
